FAERS Safety Report 20200683 (Version 2)
Quarter: 2021Q4

REPORT INFORMATION
  Report Type: Spontaneous
  Country: CN (occurrence: CN)
  Receive Date: 20211217
  Receipt Date: 20211224
  Transmission Date: 20220303
  Serious: Yes (Life-Threatening, Hospitalization, Other)
  Sender: FDA-Public Use
  Company Number: CN-PFIZER INC-202101752681

PATIENT
  Age: 38 Year
  Sex: Female

DRUGS (1)
  1. METHOTREXATE [Suspect]
     Active Substance: METHOTREXATE
     Indication: Ectopic pregnancy
     Dosage: 75 MG
     Route: 030
     Dates: start: 20191001

REACTIONS (9)
  - Maternal exposure during pregnancy [Unknown]
  - Drug ineffective for unapproved indication [Unknown]
  - Off label use [Unknown]
  - Neutropenia [Unknown]
  - Liver injury [Unknown]
  - Pyrexia [Unknown]
  - Oropharyngeal pain [Unknown]
  - Rash maculo-papular [Recovering/Resolving]
  - Stomatitis [Recovering/Resolving]
